FAERS Safety Report 17244640 (Version 3)
Quarter: 2020Q1

REPORT INFORMATION
  Report Type: Spontaneous
  Country: JP (occurrence: JP)
  Receive Date: 20200107
  Receipt Date: 20200115
  Transmission Date: 20200409
  Serious: Yes (Other)
  Sender: FDA-Public Use
  Company Number: JP-CELLTRION INC.-2019JP026784

PATIENT

DRUGS (1)
  1. INFLIXIMAB BS FOR I.V. INFUSION100 MG [NK] [Suspect]
     Active Substance: INFLIXIMAB
     Indication: CROHN^S DISEASE
     Dosage: 300 MG, QD
     Route: 041
     Dates: start: 201909, end: 201910

REACTIONS (2)
  - Haematochezia [Unknown]
  - Diarrhoea [Unknown]

NARRATIVE: CASE EVENT DATE: 201910
